FAERS Safety Report 7421193-8 (Version None)
Quarter: 2011Q2

REPORT INFORMATION
  Report Type: 
  Country: None (occurrence: None)
  Receive Date: 20110408
  Receipt Date: 20110330
  Transmission Date: 20111010
  Serious: Yes (Hospitalization)
  Sender: FDA-Public Use
  Company Number: 2011SP010577

PATIENT
  Age: 25 Year
  Sex: Female
  Weight: 52 kg

DRUGS (1)
  1. PREGNYL [Suspect]
     Indication: OVULATION INDUCTION
     Dosage: 5000 IU; ONCE;
     Dates: start: 20110125

REACTIONS (4)
  - LEUKOCYTOCLASTIC VASCULITIS [None]
  - SHOCK [None]
  - PAIN [None]
  - URTICARIA [None]
